FAERS Safety Report 8591197 (Version 5)
Quarter: 2012Q4

REPORT INFORMATION
  Report Type: Report from Study
  Country: CA (occurrence: CA)
  Receive Date: 20120601
  Receipt Date: 20120924
  Transmission Date: 20130627
  Serious: Yes (Hospitalization, Other)
  Sender: FDA-Public Use
  Company Number: CA-ABBOTT-12P-028-0936743-00

PATIENT
  Age: 77 Year
  Sex: Female
  Weight: 65 kg

DRUGS (21)
  1. HUMIRA [Suspect]
     Indication: UVEITIS
     Route: 058
     Dates: start: 20110927, end: 20120409
  2. PREDNISONE [Concomitant]
     Indication: PRODUCT USED FOR UNKNOWN INDICATION
     Route: 048
     Dates: start: 20110920, end: 20111010
  3. PREDNISONE [Concomitant]
     Route: 048
     Dates: start: 20111011, end: 20111025
  4. PREDNISONE [Concomitant]
     Route: 048
     Dates: start: 20111026, end: 20111108
  5. PREDNISONE [Concomitant]
     Route: 048
     Dates: start: 20111109, end: 20111122
  6. PREDNISONE [Concomitant]
     Route: 048
     Dates: start: 20111123, end: 20111213
  7. PREDNISONE [Concomitant]
     Dosage: EOD alternating with 10mg
     Route: 048
     Dates: start: 20111214, end: 20120124
  8. PREDNISONE [Concomitant]
     Dosage: 5mg QEOD alternating with 7.5mg
     Route: 048
     Dates: start: 20120226, end: 20120325
  9. PREDNISONE [Concomitant]
     Route: 048
     Dates: start: 20120125, end: 20120225
  10. PREDNISONE [Concomitant]
     Route: 048
     Dates: start: 20120326, end: 20120423
  11. SYNTHROID [Concomitant]
     Indication: HYPOTHYROIDISM
     Dates: start: 2003
  12. CALTRATE WITH VITAMIN D [Concomitant]
     Indication: OSTEOPOROSIS PROPHYLAXIS
     Route: 048
     Dates: start: 20110429, end: 20120511
  13. ROGAINE [Concomitant]
     Indication: HAIR GROWTH ABNORMAL
     Route: 062
     Dates: start: 20111025, end: 20120116
  14. ROGAINE [Concomitant]
     Route: 061
     Dates: start: 20120126, end: 20120424
  15. ROGAINE [Concomitant]
     Route: 061
     Dates: start: 20120425, end: 20120510
  16. RIVOTRIL [Concomitant]
     Indication: INSOMNIA
     Route: 048
     Dates: start: 20111213
  17. CRESTOR [Concomitant]
     Indication: LIPIDS INCREASED
     Route: 048
     Dates: start: 20111214
  18. CRESTOR [Concomitant]
     Indication: CARDIOVASCULAR EVENT PROPHYLAXIS
  19. TYLENOL [Concomitant]
     Indication: HEADACHE
     Dates: start: 20120316
  20. TYLENOL [Concomitant]
     Indication: ARTHRALGIA
     Route: 048
     Dates: start: 20120329
  21. RISEDRONATE [Concomitant]
     Indication: OSTEOPOROSIS PROPHYLAXIS
     Dosage: every wednesday
     Route: 048
     Dates: start: 201203

REACTIONS (1)
  - Ataxia [Not Recovered/Not Resolved]
